FAERS Safety Report 8321324-1 (Version None)
Quarter: 2012Q2

REPORT INFORMATION
  Report Type: 
  Country: None (occurrence: None)
  Receive Date: 20120430
  Receipt Date: 20120423
  Transmission Date: 20120825
  Serious: No
  Sender: FDA-Public Use
  Company Number: FR-SANOFI-AVENTIS-2012SA002479

PATIENT
  Age: 30 Year
  Sex: Female

DRUGS (5)
  1. KETOPROFEN [Suspect]
     Indication: RHEUMATOID ARTHRITIS
     Dosage: STRENGTH: 100 MG
     Route: 048
     Dates: end: 20120113
  2. NEXIUM [Concomitant]
     Route: 048
  3. ACETAMINOPHEN W/ CODEINE [Concomitant]
     Indication: RHEUMATOID ARTHRITIS
     Dosage: DOSE 4 TO 6 UNITS PER DAY
     Route: 048
  4. ARAVA [Suspect]
     Indication: RHEUMATOID ARTHRITIS
     Route: 048
     Dates: start: 20100223, end: 20120110
  5. ANAFRANIL [Concomitant]
     Dosage: STRENGTH: 25 MG; DOSE: 3 TABLETS PER DAY
     Route: 048

REACTIONS (1)
  - MATERNAL EXPOSURE DURING PREGNANCY [None]
